FAERS Safety Report 11287913 (Version 1)
Quarter: 2015Q3

REPORT INFORMATION
  Report Type: Spontaneous
  Country: US (occurrence: None)
  Receive Date: 20150720
  Receipt Date: 20150720
  Transmission Date: 20151125
  Serious: Yes (Hospitalization)
  Sender: FDA-Public Use
  Company Number: None

PATIENT
  Age: 48 Year
  Sex: Female
  Weight: 131.54 kg

DRUGS (17)
  1. NOVOLOG INSULIN [Concomitant]
  2. BUPROPION. [Concomitant]
     Active Substance: BUPROPION
  3. AMLODIPINE [Concomitant]
     Active Substance: AMLODIPINE BESYLATE
  4. LEVEMIR [Concomitant]
     Active Substance: INSULIN DETEMIR
  5. VITAMIN B12 [Concomitant]
     Active Substance: CYANOCOBALAMIN
  6. ASPIRIN. [Concomitant]
     Active Substance: ASPIRIN
  7. FUROSEMIDE. [Concomitant]
     Active Substance: FUROSEMIDE
  8. FENOFIBRATE. [Concomitant]
     Active Substance: FENOFIBRATE
  9. CLONIDINE. [Concomitant]
     Active Substance: CLONIDINE
  10. CEFDINIR. [Concomitant]
     Active Substance: CEFDINIR
  11. SULFAMETH/TMP DS TAB [Suspect]
     Active Substance: SULFAMETHOXAZOLE\TRIMETHOPRIM
     Indication: URINARY TRACT INFECTION
     Dosage: 1 TWICE DAILY TAKEN BY MOUTH
     Route: 048
     Dates: start: 20150606, end: 20150613
  12. SIMVASTATIN. [Concomitant]
     Active Substance: SIMVASTATIN
  13. VITAMIN C [Concomitant]
     Active Substance: ASCORBIC ACID
  14. LYRICA [Concomitant]
     Active Substance: PREGABALIN
  15. HYDROCODONE BITARTRATE AND ACETAMINOPHEN [Concomitant]
     Active Substance: ACETAMINOPHEN\HYDROCODONE BITARTRATE
  16. DOXYCYLINE HYCLATE [Concomitant]
     Active Substance: DOXYCYCLINE HYCLATE
  17. VITAMIN D [Concomitant]
     Active Substance: CHOLECALCIFEROL

REACTIONS (6)
  - Nausea [None]
  - Renal failure [None]
  - Vomiting [None]
  - Loss of consciousness [None]
  - Diplopia [None]
  - Rib fracture [None]

NARRATIVE: CASE EVENT DATE: 20150613
